FAERS Safety Report 5073906-0 (Version None)
Quarter: 2006Q3

REPORT INFORMATION
  Report Type: 
  Country: None (occurrence: None)
  Receive Date: 20060808
  Receipt Date: 20060621
  Transmission Date: 20061208
  Serious: Yes (Death, Disabling, Other)
  Sender: FDA-Public Use
  Company Number: PHMT2006CA01406

PATIENT
  Age: 66 Year
  Sex: Female

DRUGS (1)
  1. AREDIA [Suspect]
     Indication: METASTASES TO BONE
     Dosage: 90 MG, QMO
     Route: 042
     Dates: start: 20060214, end: 20060316

REACTIONS (8)
  - ASTHENIA [None]
  - BREAST CANCER METASTATIC [None]
  - COLOUR BLINDNESS [None]
  - DISEASE PROGRESSION [None]
  - DISSOCIATION [None]
  - PHOTOPSIA [None]
  - VISION BLURRED [None]
  - VISUAL DISTURBANCE [None]
